FAERS Safety Report 18129728 (Version 1)
Quarter: 2020Q3

REPORT INFORMATION
  Report Type: Spontaneous
  Country: US (occurrence: US)
  Receive Date: 20200810
  Receipt Date: 20200810
  Transmission Date: 20201103
  Serious: Yes (Other)
  Sender: FDA-Public Use
  Company Number: None

PATIENT
  Age: 57 Year
  Sex: Male
  Weight: 105.3 kg

DRUGS (6)
  1. HAWTHORN CEILONIAN CINAMON [Concomitant]
  2. RIZATRIPTAN. [Concomitant]
     Active Substance: RIZATRIPTAN
  3. UBRELVY [Suspect]
     Active Substance: UBROGEPANT
     Indication: MIGRAINE
     Route: 048
     Dates: start: 20200809
  4. CYCLOBENZAPRIN [Concomitant]
     Active Substance: CYCLOBENZAPRINE
  5. FLUTICASONE PROPIONAMTE [Concomitant]
  6. TRIDERM [Concomitant]
     Active Substance: TRIAMCINOLONE ACETONIDE

REACTIONS (5)
  - Chills [None]
  - Tinnitus [None]
  - Paraesthesia [None]
  - Blood pressure increased [None]
  - Headache [None]

NARRATIVE: CASE EVENT DATE: 20200809
